FAERS Safety Report 10520869 (Version 1)
Quarter: 2014Q4

REPORT INFORMATION
  Report Type: Spontaneous
  Country: US (occurrence: US)
  Receive Date: 20141015
  Receipt Date: 20141015
  Transmission Date: 20150528
  Serious: No
  Sender: FDA-Public Use
  Company Number: US-009507513-1410USA004843

PATIENT
  Age: 51 Year
  Sex: Female

DRUGS (14)
  1. DIAZEPAM. [Concomitant]
     Active Substance: DIAZEPAM
  2. ASPIRIN. [Concomitant]
     Active Substance: ASPIRIN
  3. DEPLIN [Concomitant]
     Active Substance: LEVOMEFOLATE CALCIUM
  4. BACLOFEN. [Concomitant]
     Active Substance: BACLOFEN
  5. IBUPROFEN. [Concomitant]
     Active Substance: IBUPROFEN
  6. TOPIRAMATE. [Concomitant]
     Active Substance: TOPIRAMATE
  7. CYMBALTA [Concomitant]
     Active Substance: DULOXETINE HYDROCHLORIDE
  8. NEXPLANON [Suspect]
     Active Substance: ETONOGESTREL
     Indication: CONTRACEPTION
     Dosage: 1 DF, UNK
     Route: 059
     Dates: start: 20140730
  9. GEODON [Concomitant]
     Active Substance: ZIPRASIDONE HYDROCHLORIDE\ZIPRASIDONE MESYLATE
  10. DIPHENHYDRAMINE HYDROCHLORIDE. [Concomitant]
     Active Substance: DIPHENHYDRAMINE HYDROCHLORIDE
  11. ALPRAZOLAM. [Concomitant]
     Active Substance: ALPRAZOLAM
  12. VITAMIN D [Concomitant]
     Active Substance: CHOLECALCIFEROL
  13. DEXTROAMPHETAMINE [Concomitant]
     Active Substance: DEXTROAMPHETAMINE
  14. TIZANIDINE HYDROCHLORIDE. [Concomitant]
     Active Substance: TIZANIDINE HYDROCHLORIDE

REACTIONS (4)
  - Implant site induration [Unknown]
  - Implant site cellulitis [Recovered/Resolved]
  - Implant site erythema [Unknown]
  - Implant site cellulitis [Recovered/Resolved]

NARRATIVE: CASE EVENT DATE: 20140827
